FAERS Safety Report 6585459-6 (Version None)
Quarter: 2010Q1

REPORT INFORMATION
  Report Type: 
  Country: None (occurrence: None)
  Receive Date: 20100217
  Receipt Date: 20100211
  Transmission Date: 20100710
  Serious: Yes (Other)
  Sender: FDA-Public Use
  Company Number: US-RB-018475-09

PATIENT
  Sex: Female

DRUGS (1)
  1. SUBOXONE [Suspect]
     Indication: DRUG USE FOR UNKNOWN INDICATION
     Dosage: UNKNOWN DOSE
     Route: 065
     Dates: start: 20090725

REACTIONS (3)
  - ADVERSE DRUG REACTION [None]
  - HALLUCINATION [None]
  - THROAT IRRITATION [None]
